FAERS Safety Report 25417365 (Version 1)
Quarter: 2025Q2

REPORT INFORMATION
  Report Type: Spontaneous
  Country: LV (occurrence: LV)
  Receive Date: 20250610
  Receipt Date: 20250610
  Transmission Date: 20250716
  Serious: Yes (Life-Threatening, Hospitalization)
  Sender: Steriscience PTE
  Company Number: LV-STERISCIENCE B.V.-2025-ST-001109

PATIENT
  Age: 72 Year
  Sex: Male

DRUGS (20)
  1. MIDAZOLAM [Suspect]
     Active Substance: MIDAZOLAM
     Indication: Mechanical ventilation complication
     Route: 065
  2. MIDAZOLAM [Suspect]
     Active Substance: MIDAZOLAM
     Indication: Prophylaxis
  3. FENTANYL [Suspect]
     Active Substance: FENTANYL
     Indication: Mechanical ventilation complication
     Route: 065
  4. FENTANYL [Suspect]
     Active Substance: FENTANYL
     Indication: Prophylaxis
  5. PROPOFOL [Suspect]
     Active Substance: PROPOFOL
     Indication: Mechanical ventilation complication
     Route: 065
  6. PROPOFOL [Suspect]
     Active Substance: PROPOFOL
     Indication: Prophylaxis
  7. CISATRACURIUM [Suspect]
     Active Substance: CISATRACURIUM
     Indication: Mechanical ventilation complication
     Route: 065
  8. CISATRACURIUM [Suspect]
     Active Substance: CISATRACURIUM
     Indication: Prophylaxis
  9. FUROSEMIDE [Suspect]
     Active Substance: FUROSEMIDE
     Indication: Polyuria
     Route: 065
  10. PERINDOPRIL [Concomitant]
     Active Substance: PERINDOPRIL
     Indication: Hypertension
     Route: 065
  11. METFORMIN [Concomitant]
     Active Substance: METFORMIN HYDROCHLORIDE
     Indication: Diabetes mellitus
     Route: 065
  12. DEXAMETHASONE [Concomitant]
     Active Substance: DEXAMETHASONE
     Indication: Swollen tongue
     Route: 065
  13. DEXAMETHASONE [Concomitant]
     Active Substance: DEXAMETHASONE
     Indication: Lip swelling
  14. EPINEPHRINE [Concomitant]
     Active Substance: EPINEPHRINE
     Indication: Swollen tongue
  15. EPINEPHRINE [Concomitant]
     Active Substance: EPINEPHRINE
     Indication: Lip swelling
     Route: 042
  16. EPINEPHRINE [Concomitant]
     Active Substance: EPINEPHRINE
     Indication: Angioedema
  17. SOLU-MEDROL [Concomitant]
     Active Substance: METHYLPREDNISOLONE SODIUM SUCCINATE
     Indication: Angioedema
     Route: 065
  18. Chloropyramine-hydrochloride [Concomitant]
     Indication: Angioedema
     Route: 065
  19. TRANEXAMIC ACID [Concomitant]
     Active Substance: TRANEXAMIC ACID
     Indication: Angioedema
     Route: 065
  20. FRESH FROZEN PLASMA [Concomitant]
     Active Substance: HUMAN PLASMA
     Indication: Angioedema
     Route: 065

REACTIONS (2)
  - Condition aggravated [Unknown]
  - Drug ineffective for unapproved indication [Unknown]
